FAERS Safety Report 17893959 (Version 1)
Quarter: 2020Q2

REPORT INFORMATION
  Report Type: Spontaneous
  Country: US (occurrence: US)
  Receive Date: 20200615
  Receipt Date: 20200615
  Transmission Date: 20200714
  Serious: Yes (Death)
  Sender: FDA-Public Use
  Company Number: US-ROCHE-2621811

PATIENT
  Sex: Male

DRUGS (3)
  1. ESBRIET [Suspect]
     Active Substance: PIRFENIDONE
     Dosage: 2 TAB.3 TIMES A DAILY X1 WEEK, ONSET : UNKNOWN
     Route: 048
  2. ESBRIET [Suspect]
     Active Substance: PIRFENIDONE
     Dosage: 3 TAB. 3 TIMES A DAILY WITH MEAL,ONSET : UNKNOWN
     Route: 048
  3. ESBRIET [Suspect]
     Active Substance: PIRFENIDONE
     Indication: IDIOPATHIC PULMONARY FIBROSIS
     Dosage: TAKE 1 TAB 3 TIMES A DAILY X1 WEEK, THEN 2 TABLETS THRICE A DAY, THEN 3 TAB THRICE A DAY
     Route: 048

REACTIONS (1)
  - Death [Fatal]
